FAERS Safety Report 7662847-8 (Version None)
Quarter: 2011Q3

REPORT INFORMATION
  Report Type: 
  Country: None (occurrence: None)
  Receive Date: 20110805
  Receipt Date: 20100914
  Transmission Date: 20111222
  Serious: No
  Sender: FDA-Public Use
  Company Number: US-ABBOTT-10P-163-0670727-00

PATIENT
  Sex: Female
  Weight: 103.97 kg

DRUGS (3)
  1. NIASPAN [Suspect]
     Route: 048
  2. NIASPAN [Suspect]
     Indication: BLOOD CHOLESTEROL INCREASED
     Route: 048
     Dates: start: 20100807
  3. LISINOPRIL AND HYDROCHLOROTHIAZIDE [Concomitant]
     Indication: PRODUCT USED FOR UNKNOWN INDICATION
     Route: 048

REACTIONS (4)
  - CHEST DISCOMFORT [None]
  - PRURITUS [None]
  - ABDOMINAL DISCOMFORT [None]
  - FEELING HOT [None]
